FAERS Safety Report 9866677 (Version 1)
Quarter: 2014Q1

REPORT INFORMATION
  Report Type: Spontaneous
  Country: US (occurrence: US)
  Receive Date: 20140204
  Receipt Date: 20140204
  Transmission Date: 20141002
  Serious: No
  Sender: FDA-Public Use
  Company Number: US-BIOGENIDEC-2014BI008260

PATIENT
  Age: 55 Year
  Sex: Female

DRUGS (5)
  1. TECFIDERA [Suspect]
     Indication: MULTIPLE SCLEROSIS
     Route: 048
     Dates: start: 20140113
  2. LYSINE [Concomitant]
  3. OMEGA 3-6-9 [Concomitant]
  4. SERTRALINE [Concomitant]
  5. VITAMIN C [Concomitant]

REACTIONS (1)
  - Headache [Unknown]
